FAERS Safety Report 12327270 (Version 1)
Quarter: 2016Q2

REPORT INFORMATION
  Report Type: Report from Study
  Country: CN (occurrence: CN)
  Receive Date: 20160503
  Receipt Date: 20160503
  Transmission Date: 20160815
  Serious: Yes (Other)
  Sender: FDA-Public Use
  Company Number: PHHY2016CN058402

PATIENT
  Age: 36 Year
  Sex: Female

DRUGS (41)
  1. BASILIXIMAB [Suspect]
     Active Substance: BASILIXIMAB
     Indication: PRODUCT USED FOR UNKNOWN INDICATION
     Dosage: 40 MG, QD
     Route: 065
     Dates: start: 20160319, end: 20160319
  2. PAPAVERINE HYDROCHLORIDE. [Concomitant]
     Active Substance: PAPAVERINE HYDROCHLORIDE
     Indication: ANALGESIC THERAPY
     Dosage: 60 MG, Q12H
     Route: 042
     Dates: start: 20160320, end: 20160327
  3. PIPERACILLIN AND TAZOBACTAM [Concomitant]
     Active Substance: PIPERACILLIN SODIUM\TAZOBACTAM SODIUM
     Dosage: 2.5 G, BID
     Route: 042
     Dates: start: 20160327, end: 20160328
  4. TORASEMIDE [Concomitant]
     Active Substance: TORSEMIDE
     Indication: POLYURIA
     Dosage: 20 MG, BID
     Route: 042
     Dates: start: 20160401
  5. TORASEMIDE [Concomitant]
     Active Substance: TORSEMIDE
     Indication: POLYURIA
     Dosage: 20 MG, Q8H
     Route: 042
     Dates: start: 20160322, end: 20160401
  6. BERBERINE HYDROCHLORIDE [Concomitant]
     Active Substance: BERBERINE
     Indication: DIARRHOEA
     Dosage: 0.2 G, TID
     Route: 048
     Dates: start: 20160327
  7. DILTIAZEM HYDROCHLORIDE. [Concomitant]
     Active Substance: DILTIAZEM HYDROCHLORIDE
     Indication: HYPERTENSION
     Dosage: 90 MG, BID
     Route: 048
     Dates: start: 20160325, end: 20160325
  8. HEPATITIS B IMMUNE GLOBULIN [Concomitant]
     Active Substance: HUMAN HEPATITIS B VIRUS IMMUNE GLOBULIN
     Indication: ANTIVIRAL PROPHYLAXIS
     Dosage: 400 IU, QD
     Route: 030
     Dates: start: 20160319, end: 20160326
  9. INSULIN [Concomitant]
     Active Substance: INSULIN NOS
     Dosage: 8 IU, Q6H
     Route: 042
     Dates: start: 20160320, end: 20160325
  10. MOSAPRIDE [Concomitant]
     Active Substance: MOSAPRIDE
     Indication: GASTROINTESTINAL DISORDER
     Dosage: 5 MG, TID
     Route: 048
     Dates: start: 20160323
  11. PANTOPRAZOLE [Concomitant]
     Active Substance: PANTOPRAZOLE SODIUM
     Dosage: 80 MG, BID
     Route: 042
     Dates: start: 20160327, end: 20160328
  12. PIPERACILLIN AND TAZOBACTAM [Concomitant]
     Active Substance: PIPERACILLIN SODIUM\TAZOBACTAM SODIUM
     Indication: INFECTION PROPHYLAXIS
     Dosage: 2.5 G, BID
     Route: 042
     Dates: start: 20160319, end: 20160327
  13. INSULIN [Concomitant]
     Active Substance: INSULIN NOS
     Indication: BLOOD GLUCOSE INCREASED
     Dosage: 8 IU, Q6H
     Route: 042
     Dates: start: 20160319, end: 20160320
  14. ALBUMIN HUMAN [Concomitant]
     Active Substance: ALBUMIN HUMAN
     Indication: VOLUME BLOOD DECREASED
     Dosage: 100 ML, QD
     Route: 042
     Dates: start: 20160319, end: 20160326
  15. AMBROXOL HYDROCHLORIDE [Concomitant]
     Active Substance: AMBROXOL HYDROCHLORIDE
     Indication: PROPHYLAXIS
     Dosage: 15 MG, BID
     Route: 042
     Dates: start: 20160319, end: 20160401
  16. LACTULOSE. [Concomitant]
     Active Substance: LACTULOSE
     Dosage: 15 ML, TID
     Route: 048
     Dates: start: 20160322, end: 20160323
  17. OMEPRAZOLE. [Concomitant]
     Active Substance: OMEPRAZOLE
     Indication: PROPHYLAXIS
     Dosage: 20 MG, QD
     Route: 048
     Dates: start: 20160328
  18. PANTOPRAZOLE [Concomitant]
     Active Substance: PANTOPRAZOLE SODIUM
     Indication: PROPHYLAXIS
     Dosage: 80 MG, BID
     Route: 042
     Dates: start: 20160319, end: 20160327
  19. COENZYME [Concomitant]
     Active Substance: UBIDECARENONE
     Indication: WHITE BLOOD CELL COUNT DECREASED
     Dosage: 10 MG, QD
     Route: 042
     Dates: start: 20160319, end: 20160327
  20. DILTIAZEM HYDROCHLORIDE. [Concomitant]
     Active Substance: DILTIAZEM HYDROCHLORIDE
     Dosage: 90 MG, BID
     Route: 048
     Dates: start: 20160330, end: 20160401
  21. FUROSEMIDE. [Concomitant]
     Active Substance: FUROSEMIDE
     Dosage: 20 MG, Q6H
     Route: 042
     Dates: start: 20160401
  22. LACTULOSE. [Concomitant]
     Active Substance: LACTULOSE
     Indication: DIARRHOEA
     Dosage: 15 ML, TID
     Route: 048
     Dates: start: 20160321, end: 20160322
  23. METOPROLOL. [Concomitant]
     Active Substance: METOPROLOL
     Indication: HYPERTENSION
     Dosage: 47.5 MG, QD
     Route: 048
     Dates: start: 20160328
  24. PHENTOLAMINE [Concomitant]
     Active Substance: PHENTOLAMINE
     Indication: CARDIOVASCULAR INSUFFICIENCY
     Dosage: 20 MG, Q12H
     Route: 042
     Dates: start: 20160319, end: 20160320
  25. PHENTOLAMINE [Concomitant]
     Active Substance: PHENTOLAMINE
     Dosage: 20 MG, Q12H
     Route: 042
     Dates: start: 20160320, end: 20160327
  26. POTASSIUM CHLORIDE. [Concomitant]
     Active Substance: POTASSIUM CHLORIDE
     Indication: MINERAL SUPPLEMENTATION
     Dosage: 2 G, TID
     Route: 048
     Dates: start: 20160401
  27. ALPROSTADIL. [Concomitant]
     Active Substance: ALPROSTADIL
     Dosage: 10 UG, BID
     Route: 042
     Dates: start: 20160327
  28. MYFORTIC [Suspect]
     Active Substance: MYCOPHENOLATE SODIUM
     Dosage: 720 MG, QD
     Route: 065
     Dates: start: 20160329
  29. AMLODIPINE BESYLATE. [Concomitant]
     Active Substance: AMLODIPINE BESYLATE
     Indication: HYPERTENSION
     Dosage: 5 MG, QD
     Route: 048
     Dates: start: 20160328, end: 20160331
  30. COENZYME [Concomitant]
     Active Substance: UBIDECARENONE
     Dosage: 10 MG, QD
     Route: 042
     Dates: start: 20160327, end: 20160328
  31. FUROSEMIDE. [Concomitant]
     Active Substance: FUROSEMIDE
     Indication: PROPHYLAXIS
     Dosage: 20 MG, BID
     Route: 042
     Dates: start: 20160322, end: 20160401
  32. NIFEDIPINE. [Concomitant]
     Active Substance: NIFEDIPINE
     Dosage: 30 MG, BID
     Route: 048
     Dates: start: 20160327, end: 20160331
  33. TACROLIMUS. [Suspect]
     Active Substance: TACROLIMUS
     Indication: PRODUCT USED FOR UNKNOWN INDICATION
     Dosage: 6 MG, QD
     Route: 065
     Dates: start: 20160319, end: 20160325
  34. NIFEDIPINE. [Concomitant]
     Active Substance: NIFEDIPINE
     Indication: HYPERTENSION
     Dosage: 30 MG, QD
     Route: 048
     Dates: start: 20160324, end: 20160327
  35. MYFORTIC [Suspect]
     Active Substance: MYCOPHENOLATE SODIUM
     Indication: RENAL TRANSPLANT
     Dosage: 1440 MG, QD
     Route: 065
     Dates: start: 20160319, end: 20160329
  36. PREDNISONE. [Suspect]
     Active Substance: PREDNISONE
     Indication: PRODUCT USED FOR UNKNOWN INDICATION
     Dosage: 20 MG, QD
     Route: 065
     Dates: start: 20160322
  37. TACROLIMUS. [Suspect]
     Active Substance: TACROLIMUS
     Dosage: 8 MG, QD
     Route: 065
     Dates: start: 20160325, end: 20160401
  38. CEFOSELIS SULFATE [Concomitant]
     Indication: INFECTION PROPHYLAXIS
     Dosage: 1.5 G, BID
     Route: 042
     Dates: start: 20160328
  39. NIFEDIPINE. [Concomitant]
     Active Substance: NIFEDIPINE
     Dosage: 30 MG, QD
     Route: 048
     Dates: start: 20160326, end: 20160327
  40. PAPAVERINE HYDROCHLORIDE. [Concomitant]
     Active Substance: PAPAVERINE HYDROCHLORIDE
     Indication: SEIZURE
     Dosage: 60 MG, Q12H
     Route: 042
     Dates: start: 20160319, end: 20160320
  41. ALPROSTADIL. [Concomitant]
     Active Substance: ALPROSTADIL
     Indication: THROMBOSIS PROPHYLAXIS
     Dosage: 10 UG, BID
     Route: 042
     Dates: start: 20160319, end: 20160327

REACTIONS (7)
  - Blood urea increased [Unknown]
  - White blood cell count decreased [Unknown]
  - Neutrophil count increased [Unknown]
  - Blood glucose increased [Unknown]
  - Haemoglobin decreased [Unknown]
  - Platelet count decreased [Unknown]
  - Lymphocyte count decreased [Unknown]

NARRATIVE: CASE EVENT DATE: 20160325
